FAERS Safety Report 7152315-4 (Version None)
Quarter: 2010Q4

REPORT INFORMATION
  Report Type: 
  Country: None (occurrence: None)
  Receive Date: 20101209
  Receipt Date: 20101209
  Transmission Date: 20110411
  Serious: Yes (Other)
  Sender: FDA-Public Use
  Company Number: None

PATIENT
  Age: 48 Year
  Sex: Female
  Weight: 52.1637 kg

DRUGS (15)
  1. CLOZAPINE [Suspect]
     Indication: SCHIZOPHRENIA
     Dosage: 75MG AND 200MG QAM + QHS PO
     Route: 048
     Dates: end: 20100926
  2. CLOZAPINE [Suspect]
  3. LORAZEPAM [Suspect]
     Indication: AGGRESSION
     Dosage: 2MG AND 0.5MG DAILY PO
     Route: 048
  4. LORAZEPAM [Suspect]
     Indication: AGITATION
     Dosage: 2MG AND 0.5MG DAILY PO
     Route: 048
  5. LORAZEPAM [Suspect]
  6. CLONAZEPAM [Suspect]
     Indication: AGGRESSION
     Dosage: 1MG QAM PO
     Route: 048
  7. CLONAZEPAM [Suspect]
     Indication: AGITATION
     Dosage: 1MG QAM PO
     Route: 048
  8. ASPIRIN [Concomitant]
  9. DIPHENHYDRAMINE HCL [Concomitant]
  10. DOCUSATE SODIUM [Concomitant]
  11. LEVOTHYROXINE SODIUM [Concomitant]
  12. METFORMIN HCL [Concomitant]
  13. PERPHENAZINE [Concomitant]
  14. SIMVASTATIN [Concomitant]
  15. TIOTROPIUM BROMIDE [Concomitant]

REACTIONS (2)
  - CONVULSION [None]
  - SKIN HAEMORRHAGE [None]
